FAERS Safety Report 9439369 (Version 2)
Quarter: 2013Q3

REPORT INFORMATION
  Report Type: Report from Study
  Country: JP (occurrence: JP)
  Receive Date: 20130805
  Receipt Date: 20130829
  Transmission Date: 20140515
  Serious: Yes (Other)
  Sender: FDA-Public Use
  Company Number: JP-009507513-1307JPN016175

PATIENT
  Age: 68 Year
  Sex: Male
  Weight: 68 kg

DRUGS (11)
  1. CANCIDAS FOR INTRAVENOUS DRIP INFUSION 70MG [Suspect]
     Indication: FEBRILE NEUTROPENIA
     Dosage: 70 MG, QD
     Route: 041
     Dates: start: 20130508, end: 20130508
  2. CANCIDAS FOR INTRAVENOUS DRIP INFUSION 50MG [Suspect]
     Indication: FEBRILE NEUTROPENIA
     Dosage: 50 MG, QD
     Route: 041
     Dates: start: 20130509, end: 20130511
  3. VANCOMYCIN [Suspect]
     Indication: BACTERIAL INFECTION
     Dosage: 1.5 G, QD
     Route: 041
     Dates: start: 20130506, end: 20130511
  4. MINOCYCLINE HYDROCHLORIDE [Suspect]
     Indication: PROPHYLAXIS
     Dosage: 100 MG, BID
     Route: 041
     Dates: start: 20130507, end: 20130510
  5. FINIBAX [Suspect]
     Indication: FEBRILE NEUTROPENIA
     Dosage: 1 G, TID
     Route: 041
     Dates: start: 20130508, end: 20130511
  6. TAKEPRON [Concomitant]
     Indication: GASTROOESOPHAGEAL REFLUX DISEASE
     Dosage: 15 MG, QD
     Route: 048
     Dates: start: 20130323, end: 20130516
  7. BLOPRESS [Concomitant]
     Indication: HYPERTENSION
     Dosage: 4 MG, QD
     Route: 048
     Dates: start: 20120524, end: 20130516
  8. NORVASC OD [Concomitant]
     Indication: HYPERTENSION
     Dosage: 2.5 MG, QD
     Route: 048
     Dates: start: 20120828, end: 20130516
  9. AZACTAM [Concomitant]
     Indication: FEBRILE NEUTROPENIA
     Dosage: 1 G, TID
     Route: 051
     Dates: start: 20130505, end: 20130508
  10. LASIX (FUROSEMIDE) [Concomitant]
     Indication: CARDIAC FAILURE
     Dosage: 20 MG, QD
     Route: 051
     Dates: start: 20130502, end: 20130513
  11. ITRACONAZOLE [Concomitant]
     Indication: FEBRILE NEUTROPENIA
     Dosage: 20 ML, DEVIDED DOSE FREQUENCY UNKNOWN
     Route: 048
     Dates: start: 20130425, end: 20130507

REACTIONS (1)
  - Toxic skin eruption [Recovered/Resolved]
